FAERS Safety Report 9643061 (Version 1)
Quarter: 2013Q4

REPORT INFORMATION
  Report Type: Spontaneous
  Country: GB (occurrence: GB)
  Receive Date: 20131024
  Receipt Date: 20131024
  Transmission Date: 20140711
  Serious: Yes (Other)
  Sender: FDA-Public Use
  Company Number: GB-TEVA-438274ISR

PATIENT
  Age: 33 Year
  Sex: Female

DRUGS (3)
  1. ONDANSETRON [Suspect]
     Route: 048
  2. METOCLOPRAMIDE [Suspect]
  3. CYCLIZINE HYDROCHLORIDE [Suspect]

REACTIONS (4)
  - Exposure during pregnancy [Unknown]
  - Palpitations [Unknown]
  - Drug ineffective [Unknown]
  - Pregnancy [Unknown]
